FAERS Safety Report 9928228 (Version 1)
Quarter: 2014Q1

REPORT INFORMATION
  Report Type: Spontaneous
  Country: US (occurrence: US)
  Receive Date: 20140227
  Receipt Date: 20140227
  Transmission Date: 20141002
  Serious: Yes (Other)
  Sender: FDA-Public Use
  Company Number: US-BAYER-2014-025935

PATIENT
  Age: 70 Year
  Sex: Female
  Weight: 77 kg

DRUGS (7)
  1. ALEVE CAPLET [Suspect]
  2. ADVIL [Suspect]
  3. IBUPROFEN [Suspect]
  4. MOTRIN [Suspect]
  5. NAPROXEN [Suspect]
  6. IMURAN [Concomitant]
     Dosage: UNK
  7. PREDNISONE [Concomitant]
     Dosage: UNK

REACTIONS (3)
  - Gastric ulcer [Unknown]
  - Nausea [Unknown]
  - Body height decreased [Unknown]
